FAERS Safety Report 4832520-X (Version None)
Quarter: 2005Q4

REPORT INFORMATION
  Report Type: 
  Country: None (occurrence: None)
  Receive Date: 20051117
  Receipt Date: 20051109
  Transmission Date: 20060501
  Serious: Yes (Death)
  Sender: FDA-Public Use
  Company Number: 163-20785-05110162

PATIENT
  Age: 78 Year
  Sex: Female

DRUGS (1)
  1. THALOMID [Suspect]
     Indication: MULTIPLE MYELOMA
     Dosage: 200 MG, QD; ORAL
     Route: 048
     Dates: start: 20031126, end: 20050101

REACTIONS (1)
  - BRAIN NEOPLASM [None]
